FAERS Safety Report 21819924 (Version 6)
Quarter: 2023Q2

REPORT INFORMATION
  Report Type: Report from Study
  Country: US (occurrence: US)
  Receive Date: 20230104
  Receipt Date: 20230403
  Transmission Date: 20230722
  Serious: Yes (Death, Hospitalization, Other)
  Sender: FDA-Public Use
  Company Number: US-ABBVIE-4256527

PATIENT
  Age: 68 Year
  Sex: Male
  Weight: 59.874 kg

DRUGS (2)
  1. CARBIDOPA\LEVODOPA [Suspect]
     Active Substance: CARBIDOPA\LEVODOPA
     Indication: Parkinson^s disease
     Dosage: FREQUENCY TEXT: DAILY
     Route: 050
     Dates: start: 20220928, end: 20221230
  2. CARBIDOPA\LEVODOPA [Suspect]
     Active Substance: CARBIDOPA\LEVODOPA

REACTIONS (11)
  - Dementia [Fatal]
  - Hypophagia [Fatal]
  - Aggression [Recovered/Resolved]
  - Parkinson^s disease [Fatal]
  - Condition aggravated [Unknown]
  - Fluid intake reduced [Fatal]
  - Fall [Recovered/Resolved]
  - Drug ineffective [Fatal]
  - Face injury [Not Recovered/Not Resolved]
  - Incoherent [Recovered/Resolved]
  - Refusal of treatment by patient [Fatal]

NARRATIVE: CASE EVENT DATE: 20220928
